FAERS Safety Report 9363499 (Version 1)
Quarter: 2013Q2

REPORT INFORMATION
  Report Type: Report from Study
  Country: US (occurrence: US)
  Receive Date: 20130624
  Receipt Date: 20130624
  Transmission Date: 20140414
  Serious: Yes (Death)
  Sender: FDA-Public Use
  Company Number: US-ROCHE-GNE269568

PATIENT
  Sex: 0

DRUGS (3)
  1. ALTEPLASE [Suspect]
     Indication: ISCHAEMIC STROKE
     Dosage: 0.6 MG/KG, UNK
     Route: 042
  2. ALTEPLASE [Suspect]
     Dosage: 0.3 MG/KG, UNK
     Route: 013
  3. HEPARIN [Suspect]
     Indication: PROPHYLAXIS
     Dosage: 500 UNK, UNK
     Route: 013

REACTIONS (2)
  - Pulmonary embolism [Fatal]
  - Deep vein thrombosis [Unknown]
